FAERS Safety Report 8127737-5 (Version None)
Quarter: 2011Q4

REPORT INFORMATION
  Report Type: 
  Country: None (occurrence: None)
  Receive Date: 20111230
  Receipt Date: 20100201
  Transmission Date: 20120403
  Serious: Yes (Other)
  Sender: FDA-Public Use
  Company Number: 222904USA

PATIENT
  Age: 62 Year
  Sex: Female

DRUGS (3)
  1. FAMOTIDINE [Concomitant]
  2. DIAZEPAM [Suspect]
     Dosage: (10 MG,),ORAL ; (5 MG),ORAL
     Route: 048
     Dates: start: 20100130
  3. DIAZEPAM [Suspect]
     Dosage: (10 MG,),ORAL ; (5 MG),ORAL
     Route: 048
     Dates: start: 20100130

REACTIONS (3)
  - IRRITABILITY [None]
  - AGGRESSION [None]
  - DRUG DEPENDENCE [None]
